FAERS Safety Report 14994090 (Version 1)
Quarter: 2018Q2

REPORT INFORMATION
  Report Type: Spontaneous
  Country: DE (occurrence: DE)
  Receive Date: 20180611
  Receipt Date: 20180611
  Transmission Date: 20180711
  Serious: Yes (Hospitalization)
  Sender: FDA-Public Use
  Company Number: DE-TEVA-2018-DE-904760

PATIENT
  Age: 80 Year
  Sex: Male

DRUGS (10)
  1. XARELTO [Suspect]
     Active Substance: RIVAROXABAN
     Dosage: 1-0-0-0
  2. OMEPRAZOL [Concomitant]
     Active Substance: OMEPRAZOLE
     Dosage: 1-0-0-0
  3. VALSARTAN/HYDROCHLOROTHIAZID [Concomitant]
     Active Substance: HYDROCHLOROTHIAZIDE\VALSARTAN
     Dosage: 80|12.5 MG, 1-0-0-0
  4. PROFACT DEPOT 9,45MG 3-MONATSIMPLANTAT IN FERTIGSPRITZE [Concomitant]
  5. IBANDRONSAEURE 3 MG [Suspect]
     Active Substance: IBANDRONATE SODIUM
     Dosage: NK
     Route: 065
  6. PREDNISOLON [Concomitant]
     Active Substance: PREDNISOLONE
     Dosage: 1-0-0-0
  7. VERAMEX [Concomitant]
     Active Substance: VERAPAMIL HYDROCHLORIDE
     Dosage: 1-0-0-0
  8. RANEXA 500MG [Concomitant]
     Dosage: 1-0-1-0
  9. IS 5 MONO-RATIOPHARM 40 [Concomitant]
     Dosage: 2-0-0-0
  10. SPIRONOLACTON [Concomitant]
     Active Substance: SPIRONOLACTONE
     Dosage: 1-0-0-0

REACTIONS (3)
  - Dyspnoea [Unknown]
  - Anaemia [Unknown]
  - Haematochezia [Unknown]
